FAERS Safety Report 25233451 (Version 4)
Quarter: 2025Q2

REPORT INFORMATION
  Report Type: Report from Study
  Country: US (occurrence: US)
  Receive Date: 20250424
  Receipt Date: 20250528
  Transmission Date: 20250717
  Serious: Yes (Hospitalization)
  Sender: ACADIA PHARMACEUTICALS
  Company Number: US-ACADIA PHARMACEUTICALS INC.-ACA-2025-PIM-004659

PATIENT
  Sex: Female

DRUGS (12)
  1. NUPLAZID [Suspect]
     Active Substance: PIMAVANSERIN TARTRATE
     Indication: Parkinson^s disease psychosis
     Dosage: 34 MILLIGRAM, QD
     Route: 048
  2. MELATONIN [Concomitant]
     Active Substance: MELATONIN
  3. XANAX [Concomitant]
     Active Substance: ALPRAZOLAM
  4. PRAMIPEXOLE [Concomitant]
     Active Substance: PRAMIPEXOLE
  5. POLYETHYLENE GLYCOLS [Concomitant]
     Active Substance: POLYETHYLENE GLYCOLS
  6. ONDANSETRON [Concomitant]
     Active Substance: ONDANSETRON
  7. LIDOCAINE [Concomitant]
     Active Substance: LIDOCAINE
  8. RASAGILINE [Concomitant]
     Active Substance: RASAGILINE
  9. BENZONATATE [Concomitant]
     Active Substance: BENZONATATE
  10. PREDNISONE [Concomitant]
     Active Substance: PREDNISONE
  11. ESCITALOPRAM [Concomitant]
     Active Substance: ESCITALOPRAM OXALATE
  12. GENTLE LAXATIVE [Concomitant]

REACTIONS (9)
  - Oesophageal operation [Not Recovered/Not Resolved]
  - Abdominal operation [Not Recovered/Not Resolved]
  - Pharyngeal operation [Unknown]
  - Dysphagia [Unknown]
  - Dyspepsia [Unknown]
  - Therapy interrupted [Not Recovered/Not Resolved]
  - Vomiting [Not Recovered/Not Resolved]
  - Constipation [Not Recovered/Not Resolved]
  - Wrong technique in product usage process [Not Recovered/Not Resolved]
